FAERS Safety Report 5959010-5 (Version None)
Quarter: 2008Q4

REPORT INFORMATION
  Report Type: 
  Country: None (occurrence: None)
  Receive Date: 20081113
  Receipt Date: 20080311
  Transmission Date: 20090506
  Serious: Yes (Hospitalization, Other)
  Sender: FDA-Public Use
  Company Number: SPV1-2008-00427

PATIENT
  Age: 62 Year
  Sex: Female
  Weight: 56.7 kg

DRUGS (3)
  1. AGRYLIN [Suspect]
     Indication: ESSENTIAL THROMBOCYTHAEMIA
     Dosage: 1.0 TO 1.5 MG DAILY, ORAL
     Route: 048
     Dates: start: 20050314, end: 20071219
  2. HYDREA [Suspect]
     Dates: start: 20071221
  3. ASPIRIN [Concomitant]

REACTIONS (3)
  - ATRIOVENTRICULAR BLOCK [None]
  - DEEP VEIN THROMBOSIS [None]
  - PULMONARY EMBOLISM [None]
